FAERS Safety Report 4736310-8 (Version None)
Quarter: 2005Q3

REPORT INFORMATION
  Report Type: 
  Country: None (occurrence: None)
  Receive Date: 20050804
  Receipt Date: 20050725
  Transmission Date: 20060218
  Serious: Yes (Other)
  Sender: FDA-Public Use
  Company Number: 2005037366

PATIENT
  Age: 22 Year
  Sex: Female

DRUGS (3)
  1. DEPO-PROVERA [Suspect]
     Indication: CONTRACEPTION
     Dosage: 150 MG (150 MG, 1ST INJECTION, EVERY 90 DAYS), INTRAMUSCULAR
     Route: 030
     Dates: start: 20010501, end: 20010501
  2. DEPO-PROVERA [Suspect]
     Indication: CONTRACEPTION
     Dosage: 150 MG (150 MG, 1ST INJECTION, EVERY 90 DAYS), INTRAMUSCULAR
     Route: 030
     Dates: start: 20040501, end: 20040501
  3. CALCIUM (CALCIUM) [Concomitant]

REACTIONS (9)
  - ABORTION SPONTANEOUS [None]
  - ACNE [None]
  - DRUG EXPOSURE DURING PREGNANCY [None]
  - DRUG INEFFECTIVE [None]
  - EATING DISORDER [None]
  - OSTEOPENIA [None]
  - PREGNANCY WITH INJECTABLE CONTRACEPTIVE [None]
  - SCAR [None]
  - WEIGHT INCREASED [None]
